FAERS Safety Report 16666841 (Version 1)
Quarter: 2019Q3

REPORT INFORMATION
  Report Type: Spontaneous
  Country: US (occurrence: US)
  Receive Date: 20190805
  Receipt Date: 20190805
  Transmission Date: 20191004
  Serious: No
  Sender: FDA-Public Use
  Company Number: US-ACCORD-108100

PATIENT
  Sex: Female
  Weight: 68.04 kg

DRUGS (3)
  1. ANASTROZOLE ACCORD [Suspect]
     Active Substance: ANASTROZOLE
     Indication: BREAST CANCER
     Dosage: ONE
     Dates: start: 201806
  2. LEVOTHYROXINE. [Concomitant]
     Active Substance: LEVOTHYROXINE
  3. LIOTHYRONINE [Concomitant]
     Active Substance: LIOTHYRONINE

REACTIONS (3)
  - Trichorrhexis [Not Recovered/Not Resolved]
  - Hair texture abnormal [Not Recovered/Not Resolved]
  - Alopecia [Not Recovered/Not Resolved]
